FAERS Safety Report 11689592 (Version 1)
Quarter: 2015Q4

REPORT INFORMATION
  Report Type: Spontaneous
  Country: US (occurrence: US)
  Receive Date: 20151102
  Receipt Date: 20151102
  Transmission Date: 20160304
  Serious: No
  Sender: FDA-Public Use
  Company Number: US-BIOGENIDEC-2015BI143642

PATIENT
  Sex: Female

DRUGS (2)
  1. TECFIDERA [Suspect]
     Active Substance: DIMETHYL FUMARATE
     Indication: MULTIPLE SCLEROSIS
     Dates: start: 20151016
  2. TECFIDERA [Suspect]
     Active Substance: DIMETHYL FUMARATE
     Indication: MULTIPLE SCLEROSIS
     Dates: start: 201510

REACTIONS (6)
  - Eye haemorrhage [Unknown]
  - Migraine [Unknown]
  - Malaise [Unknown]
  - Nausea [Unknown]
  - Retching [Unknown]
  - Hangover [Unknown]

NARRATIVE: CASE EVENT DATE: 201510
